FAERS Safety Report 6161529-1 (Version None)
Quarter: 2009Q2

REPORT INFORMATION
  Report Type: 
  Country: None (occurrence: None)
  Receive Date: 20090417
  Receipt Date: 20090408
  Transmission Date: 20091009
  Serious: Yes (Death, Hospitalization)
  Sender: FDA-Public Use
  Company Number: 2009AL002021

PATIENT
  Age: 72 Year
  Sex: Male
  Weight: 79.3795 kg

DRUGS (1)
  1. DIGOXIN [Suspect]
     Indication: CARDIAC DISORDER
     Dosage: DAILY, PO, UNDER A YEAR
     Route: 048

REACTIONS (2)
  - CARDIAC DISORDER [None]
  - LOSS OF CONSCIOUSNESS [None]
